FAERS Safety Report 14668484 (Version 1)
Quarter: 2018Q1

REPORT INFORMATION
  Report Type: Spontaneous
  Country: CA (occurrence: CA)
  Receive Date: 20180322
  Receipt Date: 20180322
  Transmission Date: 20180509
  Serious: Yes (Hospitalization)
  Sender: FDA-Public Use
  Company Number: CA-BAYER-2018-051604

PATIENT
  Age: 49 Year
  Sex: Female
  Weight: 56.69 kg

DRUGS (2)
  1. MIRENA [Suspect]
     Active Substance: LEVONORGESTREL
     Indication: FIBROMA
     Dosage: 20 MCG/24HR, CONT
     Route: 015
  2. MIRENA [Suspect]
     Active Substance: LEVONORGESTREL
     Indication: FIBROMA

REACTIONS (11)
  - Balance disorder [Unknown]
  - Anxiety [Unknown]
  - Hot flush [Unknown]
  - Panic attack [Unknown]
  - Vomiting [Unknown]
  - Abdominal pain [Unknown]
  - Intra-uterine contraceptive device removal [Unknown]
  - Dizziness [Unknown]
  - Blood pressure decreased [Unknown]
  - Diarrhoea [Unknown]
  - Headache [Unknown]
